FAERS Safety Report 7607980-1 (Version None)
Quarter: 2011Q3

REPORT INFORMATION
  Report Type: 
  Country: None (occurrence: None)
  Receive Date: 20110714
  Receipt Date: 20110711
  Transmission Date: 20111222
  Serious: Yes (Other)
  Sender: FDA-Public Use
  Company Number: US-PFIZER INC-2011083112

PATIENT
  Sex: Female

DRUGS (6)
  1. CHANTIX [Suspect]
     Dosage: UNK
     Dates: start: 20080301, end: 20081101
  2. ALPRAZOLAM [Concomitant]
     Indication: INSOMNIA
     Dosage: UNK
     Dates: start: 20050101
  3. KLOR-CON [Concomitant]
     Indication: ELECTROLYTE SUBSTITUTION THERAPY
     Dosage: UNK
     Dates: start: 20060901
  4. CHANTIX [Suspect]
     Indication: SMOKING CESSATION THERAPY
     Dosage: 1 MG
     Dates: start: 20060901, end: 20070201
  5. VALACICLOVIR HYDROCHLORIDE [Concomitant]
     Indication: ORAL HERPES
     Dosage: UNK
     Dates: start: 20020101
  6. HYDROCHLOROTHIAZIDE [Concomitant]
     Indication: FLUID RETENTION
     Dosage: UNK
     Dates: start: 20050101

REACTIONS (6)
  - DEPRESSION [None]
  - ABNORMAL DREAMS [None]
  - AGGRESSION [None]
  - ANXIETY [None]
  - ANGER [None]
  - SUICIDAL IDEATION [None]
